FAERS Safety Report 17505627 (Version 2)
Quarter: 2020Q1

REPORT INFORMATION
  Report Type: Spontaneous
  Country: DE (occurrence: DE)
  Receive Date: 20200305
  Receipt Date: 20200309
  Transmission Date: 20200409
  Serious: Yes (Other)
  Sender: FDA-Public Use
  Company Number: DE-PFIZER INC-2020095076

PATIENT

DRUGS (1)
  1. CYTOTEC [Suspect]
     Active Substance: MISOPROSTOL
     Indication: LABOUR INDUCTION
     Dosage: 1 TABLET, EVERY 4 HRS
     Route: 064
     Dates: start: 20160909, end: 20160911

REACTIONS (9)
  - Foetal heart rate decreased [Unknown]
  - Abdominal pain [Unknown]
  - Infection susceptibility increased [Unknown]
  - Constipation neonatal [Unknown]
  - Growing pains [Unknown]
  - Fatigue [Unknown]
  - Foetal exposure during pregnancy [Unknown]
  - Foetal heart rate abnormal [Unknown]
  - Diarrhoea neonatal [Unknown]
